FAERS Safety Report 8360143-7 (Version None)
Quarter: 2012Q2

REPORT INFORMATION
  Report Type: 
  Country: None (occurrence: None)
  Receive Date: 20120515
  Receipt Date: 20120501
  Transmission Date: 20120825
  Serious: Yes (Other)
  Sender: FDA-Public Use
  Company Number: DK-JNJFOC-20120111957

PATIENT
  Age: 52 Year
  Sex: Female

DRUGS (3)
  1. BUPRENORPHINE [Suspect]
     Indication: PRODUCT USED FOR UNKNOWN INDICATION
     Route: 062
  2. BUPRENORPHINE [Suspect]
     Indication: EHLERS-DANLOS SYNDROME
     Route: 003
  3. TRAMADOL HCL [Suspect]
     Indication: EHLERS-DANLOS SYNDROME
     Route: 048

REACTIONS (3)
  - HYPERSENSITIVITY [None]
  - INFLUENZA LIKE ILLNESS [None]
  - DERMATITIS CONTACT [None]
